FAERS Safety Report 5138354-3 (Version None)
Quarter: 2006Q4

REPORT INFORMATION
  Report Type: 
  Country: None (occurrence: None)
  Receive Date: 20061030
  Receipt Date: 20060905
  Transmission Date: 20070319
  Serious: Yes (Other)
  Sender: FDA-Public Use
  Company Number: HU-AMGEN-UK192607

PATIENT
  Sex: Male

DRUGS (10)
  1. ARANESP [Suspect]
     Indication: RENAL FAILURE CHRONIC
     Route: 040
     Dates: start: 20060301
  2. APROVEL [Concomitant]
     Route: 048
     Dates: start: 20040101
  3. CARVEDILOL [Concomitant]
     Route: 048
     Dates: start: 20040101
  4. NORVASC [Concomitant]
     Route: 048
     Dates: start: 20040101
  5. RILMENIDINE [Concomitant]
     Route: 048
     Dates: start: 20040101
  6. EBRANTIL [Concomitant]
     Route: 048
     Dates: start: 20040801
  7. CARDURA [Concomitant]
     Route: 048
     Dates: start: 20040101
  8. TEGRETOL [Concomitant]
     Route: 048
     Dates: start: 20051101
  9. RIVOTRIL [Concomitant]
     Route: 048
     Dates: start: 20051101
  10. ANTIHYPERTENSIVE MEDICATION NOS [Concomitant]
     Route: 048
     Dates: start: 20060701

REACTIONS (2)
  - PERICARDITIS [None]
  - THERAPEUTIC RESPONSE DECREASED [None]
